FAERS Safety Report 17901205 (Version 1)
Quarter: 2020Q2

REPORT INFORMATION
  Report Type: Spontaneous
  Country: FR (occurrence: FR)
  Receive Date: 20200616
  Receipt Date: 20200616
  Transmission Date: 20200714
  Serious: Yes (Hospitalization)
  Sender: FDA-Public Use
  Company Number: FR-PFIZER INC-2020231984

PATIENT
  Age: 24 Year
  Sex: Female

DRUGS (1)
  1. LYRICA [Suspect]
     Active Substance: PREGABALIN
     Dosage: UNK
     Route: 048

REACTIONS (5)
  - Drug abuse [Recovered/Resolved]
  - Blood lactic acid increased [Unknown]
  - Amnesia [Unknown]
  - Asthenia [Unknown]
  - Confusional state [Unknown]
